FAERS Safety Report 10029247 (Version 2)
Quarter: 2014Q1

REPORT INFORMATION
  Report Type: Report from Study
  Country: FI (occurrence: FI)
  Receive Date: 20140321
  Receipt Date: 20140321
  Transmission Date: 20141002
  Serious: Yes (Other)
  Sender: FDA-Public Use
  Company Number: PHHY2014FI003479

PATIENT
  Age: 14 Year
  Sex: Female

DRUGS (5)
  1. LEPONEX [Suspect]
     Indication: SCHIZOTYPAL PERSONALITY DISORDER
     Dosage: 50 MG, QD, ONCE DAILY
     Dates: start: 20131111, end: 20140220
  2. LEPONEX [Suspect]
     Indication: OFF LABEL USE
  3. PEGORION [Concomitant]
     Dosage: 12 G, QD, ONCE DAILY
  4. SCOPODERM [Concomitant]
     Dosage: 1 DF, ONE PATCH (EVERY THREE DAYS)
  5. MELATONIN [Concomitant]
     Dosage: 3 MG, QD, ONCE DAILY

REACTIONS (10)
  - White blood cell count decreased [Recovered/Resolved]
  - Neutrophil count decreased [Recovered/Resolved]
  - Influenza [Recovering/Resolving]
  - Drug administered to patient of inappropriate age [Unknown]
  - Off label use [Unknown]
  - Oropharyngeal pain [Unknown]
  - Cough [Unknown]
  - White blood cell count increased [Recovered/Resolved]
  - Neutrophil count increased [Recovered/Resolved]
  - Pyrexia [Recovered/Resolved]
